FAERS Safety Report 17991150 (Version 2)
Quarter: 2020Q3

REPORT INFORMATION
  Report Type: Spontaneous
  Country: DE (occurrence: DE)
  Receive Date: 20200707
  Receipt Date: 20200709
  Transmission Date: 20201103
  Serious: Yes (Other)
  Sender: FDA-Public Use
  Company Number: DE-ASTRAZENECA-2020SE82985

PATIENT
  Sex: Male

DRUGS (1)
  1. MIFLONIDE BREEZHALER [Suspect]
     Active Substance: BUDESONIDE
     Indication: PRODUCT USED FOR UNKNOWN INDICATION
     Dosage: 460.0MG UNKNOWN
     Route: 055

REACTIONS (4)
  - Product quality issue [Unknown]
  - Device malfunction [Unknown]
  - Product physical issue [Unknown]
  - Foreign body aspiration [Unknown]
